FAERS Safety Report 23830579 (Version 1)
Quarter: 2024Q2

REPORT INFORMATION
  Report Type: Spontaneous
  Country: DE (occurrence: DE)
  Receive Date: 20240508
  Receipt Date: 20240508
  Transmission Date: 20240716
  Serious: Yes (Hospitalization)
  Sender: FDA-Public Use
  Company Number: None

PATIENT
  Age: 22 Year
  Sex: Female

DRUGS (7)
  1. DOXYCYCLINE HYCLATE [Suspect]
     Active Substance: DOXYCYCLINE HYCLATE
     Dosage: 4 DF
     Route: 048
  2. ACETAMINOPHEN\BUTYLSCOPOLAMINE BROMIDE [Suspect]
     Active Substance: ACETAMINOPHEN\BUTYLSCOPOLAMINE BROMIDE
     Dosage: 26 DF
     Route: 048
  3. PENICILLIN G SODIUM [Suspect]
     Active Substance: PENICILLIN G SODIUM
     Dosage: 10 DF
  4. ACETAMINOPHEN\ASCORBIC ACID\GUAIFENESIN\PHENYLEPHRINE [Suspect]
     Active Substance: ACETAMINOPHEN\ASCORBIC ACID\GUAIFENESIN\PHENYLEPHRINE
     Dosage: 6 DF
  5. IRON\VITAMIN B COMPLEX [Suspect]
     Active Substance: IRON\VITAMIN B COMPLEX
     Dosage: 10 DF
  6. IBUPROFEN [Suspect]
     Active Substance: IBUPROFEN
     Dosage: 3200 MG
  7. FERROUS SULFATE\FOLIC ACID [Suspect]
     Active Substance: FERROUS SULFATE\FOLIC ACID
     Dosage: 1 DF

REACTIONS (3)
  - Vomiting [Unknown]
  - Drug abuse [Unknown]
  - Suicide attempt [Unknown]
